FAERS Safety Report 4363398-9 (Version None)
Quarter: 2004Q2

REPORT INFORMATION
  Report Type: 
  Country: None (occurrence: None)
  Receive Date: 20040524
  Receipt Date: 20040519
  Transmission Date: 20050107
  Serious: Yes (Other)
  Sender: FDA-Public Use
  Company Number: CA-GLAXOSMITHKLINE-A0511544A

PATIENT
  Age: 68 Year
  Sex: Female

DRUGS (7)
  1. AVANDIA [Suspect]
     Dates: start: 20040101
  2. DIABETA [Concomitant]
     Dosage: 5MG FOUR TIMES PER DAY
     Route: 048
  3. GLUCOPHAGE [Concomitant]
     Dosage: 800MG TWICE PER DAY
  4. INHIBACE [Concomitant]
  5. RESTORIL [Concomitant]
     Dosage: 30MG AT NIGHT
  6. LIPIDIL [Concomitant]
  7. ASPIRIN [Concomitant]

REACTIONS (2)
  - AGGRESSION [None]
  - MOOD SWINGS [None]
